FAERS Safety Report 9939352 (Version 1)
Quarter: 2014Q1

REPORT INFORMATION
  Report Type: Report from Study
  Country: US (occurrence: US)
  Receive Date: 20140303
  Receipt Date: 20140303
  Transmission Date: 20141002
  Serious: No
  Sender: FDA-Public Use
  Company Number: US-ABBVIE-13P-163-1033464-00

PATIENT
  Age: 70 Year
  Sex: Female

DRUGS (5)
  1. HUMIRA [Suspect]
     Indication: RHEUMATOID ARTHRITIS
     Route: 058
     Dates: start: 201207
  2. PLAQUENIL [Concomitant]
     Indication: RHEUMATOID ARTHRITIS
     Dosage: 2 TABLETS IN THE AM
     Route: 048
  3. PREDNISONE [Concomitant]
     Indication: RHEUMATOID ARTHRITIS
     Dosage: 10MG DAILY
     Route: 048
  4. NEURONTIN [Concomitant]
     Indication: RHEUMATOID ARTHRITIS
     Dosage: 2 TABLETS IN THE AM AND 2 TABLETS IN THE PM
     Route: 048
  5. UNKNOWN MEDICATION(S) [Concomitant]
     Indication: PRODUCT USED FOR UNKNOWN INDICATION

REACTIONS (3)
  - Productive cough [Not Recovered/Not Resolved]
  - Bronchitis [Not Recovered/Not Resolved]
  - Hyperhidrosis [Not Recovered/Not Resolved]
